FAERS Safety Report 15530526 (Version 1)
Quarter: 2018Q4

REPORT INFORMATION
  Report Type: Report from Study
  Country: IL (occurrence: IL)
  Receive Date: 20181018
  Receipt Date: 20181018
  Transmission Date: 20190205
  Serious: Yes (Hospitalization, Other)
  Sender: FDA-Public Use
  Company Number: IL-SA-2018SA202096

PATIENT
  Age: 49 Year
  Sex: Male

DRUGS (3)
  1. EXENATIDE. [Suspect]
     Active Substance: EXENATIDE
     Dosage: UNK UNK, UNK
  2. INSULIN GLARGINE [Suspect]
     Active Substance: INSULIN GLARGINE
     Indication: DIABETES MELLITUS
     Dosage: 24 U, QD
     Route: 058
  3. LIXISENATIDE [Suspect]
     Active Substance: LIXISENATIDE
     Indication: PRODUCT USED FOR UNKNOWN INDICATION
     Dosage: UNK

REACTIONS (4)
  - Injection site mass [Not Recovered/Not Resolved]
  - Cardiac pacemaker insertion [Unknown]
  - Blood glucose increased [Not Recovered/Not Resolved]
  - Blood glucose increased [Unknown]
